FAERS Safety Report 14030856 (Version 1)
Quarter: 2017Q4

REPORT INFORMATION
  Report Type: Spontaneous
  Country: JP (occurrence: JP)
  Receive Date: 20171002
  Receipt Date: 20171002
  Transmission Date: 20180321
  Serious: Yes (Other)
  Sender: FDA-Public Use
  Company Number: JP-ACCORD-059295

PATIENT
  Age: 19 Year
  Sex: Male
  Weight: 40.8 kg

DRUGS (1)
  1. PIOGLITAZONE/PIOGLITAZONE HYDROCHLORIDE [Suspect]
     Active Substance: PIOGLITAZONE HYDROCHLORIDE
     Indication: CONGENITAL GENERALISED LIPODYSTROPHY

REACTIONS (1)
  - Drug ineffective [Unknown]
